FAERS Safety Report 8001589-6 (Version None)
Quarter: 2011Q4

REPORT INFORMATION
  Report Type: 
  Country: None (occurrence: None)
  Receive Date: 20111219
  Receipt Date: 20111206
  Transmission Date: 20120403
  Serious: Yes (Other)
  Sender: FDA-Public Use
  Company Number: 1000026207

PATIENT
  Sex: Female

DRUGS (2)
  1. ESCITALOPRAM OXALATE [Suspect]
     Dosage: ORAL
     Route: 048
  2. LORAZEPAM [Concomitant]

REACTIONS (5)
  - LOSS OF CONSCIOUSNESS [None]
  - SPEECH DISORDER [None]
  - AMNESIA [None]
  - FEELING ABNORMAL [None]
  - THOUGHT BLOCKING [None]
